FAERS Safety Report 9214068 (Version 2)
Quarter: 2013Q2

REPORT INFORMATION
  Report Type: Spontaneous
  Country: US (occurrence: US)
  Receive Date: 20130405
  Receipt Date: 20130424
  Transmission Date: 20140414
  Serious: Yes (Death, Hospitalization, Other)
  Sender: FDA-Public Use
  Company Number: US-PFIZER INC-2013102957

PATIENT
  Age: 83 Year
  Sex: Female

DRUGS (18)
  1. REVATIO [Suspect]
     Indication: PULMONARY HYPERTENSION
     Dosage: 20 MG, 3X/DAY
     Route: 048
     Dates: start: 20121120
  2. VITAMIN D3 [Concomitant]
     Dosage: 2000 IU, 1X/DAY
     Route: 048
  3. LANTUS [Concomitant]
     Dosage: 100 IU/ML, 34 UNITS ACB AND 24 UNITS AT BEDTIME
  4. ASCORBIC ACID [Concomitant]
     Dosage: 500 MG, 1X/DAY
     Route: 048
  5. KLOR-CON M [Concomitant]
     Dosage: 20 MEQ, 1X/DAY
     Route: 048
  6. COZAAR [Concomitant]
     Dosage: 25 MG, 1X/DAY
     Route: 048
  7. PRILOSEC [Concomitant]
     Dosage: 20 MG, TAKE I CAPSULE BY MOUTH EVERY MORNING (BEFORE BREAKFAST)
     Route: 048
  8. NOVOLOG [Concomitant]
     Dosage: INJECT 10-18 UNITS INTO THE SKIN 3 TIMES DAILY (BEFORE MEALS)
  9. TOPROL XL [Concomitant]
     Dosage: 50 MG, 1X/DAY
     Route: 048
  10. ASPIRIN [Concomitant]
     Dosage: 81 MG, 1X/DAY
     Route: 048
  11. DUONEB [Concomitant]
     Dosage: 3 ML, EVERY 6 HOURS
  12. FERROUS SULFATE [Concomitant]
     Dosage: 325 MG (65MG IRON), 1X/DAY
     Route: 048
  13. ZOCOR [Concomitant]
     Dosage: 40 MG, 1X/DAY
     Route: 048
  14. FOLVITE [Concomitant]
     Dosage: 1 MG, 1X/DAY
  15. VITAMIN B12 [Concomitant]
     Indication: ANAEMIA
     Dosage: 1000 UG, 1X/DAY
     Route: 048
  16. CLEOCIN [Concomitant]
     Dosage: 300 MG, UNK
  17. VITAMIN D [Concomitant]
     Dosage: 50000 IU, UNK
  18. LISINOPRIL [Concomitant]

REACTIONS (12)
  - Death [Fatal]
  - Acute respiratory failure [Unknown]
  - Atrial fibrillation [Unknown]
  - Diabetes mellitus [Unknown]
  - Atrial flutter [Unknown]
  - Chronic respiratory failure [Unknown]
  - Pulmonary hypertension [Unknown]
  - Cardiac failure congestive [Unknown]
  - Renal failure acute [Unknown]
  - Renal failure acute [Unknown]
  - Post procedural haemorrhage [Unknown]
  - Ischaemic hepatitis [Unknown]
